FAERS Safety Report 16535953 (Version 2)
Quarter: 2019Q3

REPORT INFORMATION
  Report Type: Spontaneous
  Country: US (occurrence: US)
  Receive Date: 20190705
  Receipt Date: 20190820
  Transmission Date: 20191004
  Serious: Yes (Other)
  Sender: FDA-Public Use
  Company Number: US-TORRENT-00008969

PATIENT
  Sex: Male

DRUGS (1)
  1. LOSARTAN. [Suspect]
     Active Substance: LOSARTAN
     Indication: HYPERTENSION
     Dosage: TOOK MEDICATION FOR MANY YEARS AND CURRENTLY IS NOT TAKING IT SINCE THE MEDICATION WAS RECALLED.
     Route: 048

REACTIONS (4)
  - Cerebrovascular accident [Unknown]
  - Skin cancer [Not Recovered/Not Resolved]
  - Malaise [Not Recovered/Not Resolved]
  - Physical disability [Not Recovered/Not Resolved]
